FAERS Safety Report 25957368 (Version 1)
Quarter: 2025Q4

REPORT INFORMATION
  Report Type: Spontaneous
  Country: US (occurrence: US)
  Receive Date: 20251024
  Receipt Date: 20251024
  Transmission Date: 20260117
  Serious: No
  Sender: SEPTODONT
  Company Number: US-SEPTODONT-2025019545

PATIENT

DRUGS (4)
  1. SEPTOCAINE [Suspect]
     Active Substance: ARTICAINE HYDROCHLORIDE\EPINEPHRINE BITARTRATE
     Indication: Dental local anaesthesia
     Dosage: 1 CARTRIDGE.
     Route: 065
  2. SODIUM BICARBONATE [Suspect]
     Active Substance: SODIUM BICARBONATE
  3. 27Ga Long Needle [Concomitant]
  4. 30Ga Short Needle [Concomitant]

REACTIONS (2)
  - Hyperaesthesia [Unknown]
  - Off label use [Unknown]
